FAERS Safety Report 14931393 (Version 1)
Quarter: 2018Q2

REPORT INFORMATION
  Report Type: Spontaneous
  Country: FR (occurrence: FR)
  Receive Date: 20180524
  Receipt Date: 20180524
  Transmission Date: 20180711
  Serious: Yes (Other)
  Sender: FDA-Public Use
  Company Number: FR-MERCK KGAA-2048372

PATIENT
  Age: 47 Year
  Sex: Female

DRUGS (1)
  1. NOVOTHYROX [Suspect]
     Active Substance: LEVOTHYROXINE SODIUM
     Indication: PRODUCT USED FOR UNKNOWN INDICATION
     Dates: start: 20170520

REACTIONS (21)
  - Tension [None]
  - Blood cholesterol increased [None]
  - Temporomandibular joint syndrome [None]
  - Tinnitus [None]
  - Hyperacusis [None]
  - Anxiety [None]
  - Marital problem [None]
  - Alopecia [None]
  - Muscle spasms [None]
  - Deafness unilateral [None]
  - Social avoidant behaviour [None]
  - Depression [None]
  - Fatigue [None]
  - Crying [None]
  - Muscle contracture [None]
  - Pain [None]
  - Decreased interest [None]
  - Asocial behaviour [None]
  - Ear discomfort [None]
  - Mean platelet volume decreased [None]
  - Stress [None]

NARRATIVE: CASE EVENT DATE: 2017
